FAERS Safety Report 5941531-2 (Version None)
Quarter: 2008Q4

REPORT INFORMATION
  Report Type: 
  Country: None (occurrence: None)
  Receive Date: 20081105
  Receipt Date: 20081027
  Transmission Date: 20090506
  Serious: Yes (Hospitalization, Other)
  Sender: FDA-Public Use
  Company Number: US-BAYER-200836650NA

PATIENT
  Age: 37 Year
  Sex: Female

DRUGS (2)
  1. YASMIN [Suspect]
     Indication: DRUG USE FOR UNKNOWN INDICATION
     Route: 048
  2. YAZ [Suspect]
     Indication: DRUG USE FOR UNKNOWN INDICATION
     Route: 048

REACTIONS (7)
  - CHROMATURIA [None]
  - HAEMATURIA [None]
  - HAEMOLYTIC ANAEMIA [None]
  - HYPERTENSION [None]
  - HYPOAESTHESIA [None]
  - PROTEINURIA [None]
  - THROMBOTIC THROMBOCYTOPENIC PURPURA [None]
